FAERS Safety Report 7823634-0 (Version None)
Quarter: 2011Q4

REPORT INFORMATION
  Report Type: 
  Country: None (occurrence: None)
  Receive Date: 20111019
  Receipt Date: 20111019
  Transmission Date: 20120403
  Serious: Yes (Hospitalization)
  Sender: FDA-Public Use
  Company Number: None

PATIENT
  Age: 23 Year
  Sex: Female
  Weight: 76.657 kg

DRUGS (12)
  1. ANCEF [Suspect]
  2. DIPHENHYDRAMINE HCL [Concomitant]
     Route: 048
  3. TRIAMCINOLONE TOPICAL CREAM [Concomitant]
     Route: 061
  4. UNASYN [Concomitant]
  5. SYNTHROID [Concomitant]
     Route: 048
  6. TYLENOL-500 [Concomitant]
     Route: 048
  7. CEFIRIZINE [Concomitant]
  8. OXYCODONE HCL [Concomitant]
     Route: 048
  9. INSULINE ASPART [Concomitant]
  10. SODIUM CHLORIDE NASAL 0.65% SOLUTION [Concomitant]
     Route: 045
  11. HYDROCORTISONE [Concomitant]
  12. FAMOTIDINE [Concomitant]
     Route: 048

REACTIONS (8)
  - LIP SWELLING [None]
  - VOMITING [None]
  - PYREXIA [None]
  - MOUTH ULCERATION [None]
  - RASH MACULO-PAPULAR [None]
  - VISION BLURRED [None]
  - ARTHROPOD BITE [None]
  - NAUSEA [None]
